FAERS Safety Report 9695458 (Version 3)
Quarter: 2013Q4

REPORT INFORMATION
  Report Type: Spontaneous
  Country: DE (occurrence: DE)
  Receive Date: 20131119
  Receipt Date: 20131226
  Transmission Date: 20140711
  Serious: Yes (Disabling)
  Sender: FDA-Public Use
  Company Number: DE-ROCHE-1289206

PATIENT
  Age: 47 Year
  Sex: Female

DRUGS (8)
  1. HERCEPTIN [Suspect]
     Indication: BREAST CANCER METASTATIC
     Route: 065
     Dates: start: 201207
  2. PERJETA [Suspect]
     Indication: BREAST CANCER METASTATIC
     Route: 065
     Dates: start: 201306
  3. FASLODEX [Suspect]
     Indication: BREAST CANCER METASTATIC
     Route: 065
     Dates: start: 201306
  4. ABRAXANE [Suspect]
     Indication: BREAST CANCER METASTATIC
     Route: 065
     Dates: start: 201306
  5. ZOLADEX [Suspect]
     Indication: BREAST CANCER METASTATIC
     Route: 065
     Dates: start: 201207, end: 201302
  6. ZOLADEX [Suspect]
     Route: 065
     Dates: start: 201303
  7. ZOMETA [Suspect]
     Indication: BREAST CANCER METASTATIC
     Route: 065
     Dates: start: 201211, end: 201303
  8. XGEVA [Concomitant]
     Indication: BREAST CANCER METASTATIC
     Route: 065
     Dates: start: 201302, end: 201306

REACTIONS (4)
  - Scleroderma [Not Recovered/Not Resolved]
  - Raynaud^s phenomenon [Unknown]
  - Local swelling [Unknown]
  - Malignant neoplasm progression [Unknown]
